FAERS Safety Report 18809614 (Version 2)
Quarter: 2021Q1

REPORT INFORMATION
  Report Type: Spontaneous
  Country: FR (occurrence: FR)
  Receive Date: 20210129
  Receipt Date: 20210208
  Transmission Date: 20210419
  Serious: Yes (Hospitalization)
  Sender: FDA-Public Use
  Company Number: FR-EMD SERONO-9215044

PATIENT
  Age: 28 Year
  Sex: Female

DRUGS (5)
  1. REBIF [Suspect]
     Active Substance: INTERFERON BETA-1A
     Indication: MULTIPLE SCLEROSIS
     Route: 058
     Dates: start: 202010
  2. REBIF [Suspect]
     Active Substance: INTERFERON BETA-1A
     Route: 058
     Dates: start: 2020
  3. REBIF [Suspect]
     Active Substance: INTERFERON BETA-1A
     Route: 058
     Dates: end: 202101
  4. REBIF [Suspect]
     Active Substance: INTERFERON BETA-1A
     Dosage: 6 INJECTIONS AT 50 % OF 22 MICROGRAMS
     Route: 058
     Dates: start: 2020
  5. REBIF [Suspect]
     Active Substance: INTERFERON BETA-1A
     Dosage: 6 INJECTIONS AT 20 % OF 22 MICROGRAMS
     Route: 058
     Dates: start: 2020

REACTIONS (9)
  - Influenza like illness [Unknown]
  - Incorrect dose administered [Recovered/Resolved]
  - Multiple sclerosis [Unknown]
  - Drug titration error [Recovered/Resolved]
  - Device issue [Not Recovered/Not Resolved]
  - Treatment noncompliance [Recovered/Resolved]
  - Multiple sclerosis relapse [Unknown]
  - Anxiety [Unknown]
  - Product availability issue [Recovered/Resolved]

NARRATIVE: CASE EVENT DATE: 2020
